FAERS Safety Report 8249846 (Version 3)
Quarter: 2014Q1

REPORT INFORMATION
  Report Type: Spontaneous
  Country: US (occurrence: US)
  Receive Date: 20111117
  Receipt Date: 20140220
  Transmission Date: 20141002
  Serious: Yes (Life-Threatening, Other)
  Sender: FDA-Public Use
  Company Number: US-ASTRAZENECA-2010SE46628

PATIENT
  Age: 775 Month
  Sex: Male
  Weight: 93 kg

DRUGS (51)
  1. CRESTOR [Suspect]
     Indication: STENT PLACEMENT
     Route: 048
  2. CRESTOR [Suspect]
     Indication: STENT PLACEMENT
     Route: 048
     Dates: end: 20131126
  3. MORPHINE [Suspect]
     Route: 065
  4. PLAVIX [Concomitant]
     Indication: STENT PLACEMENT
     Dosage: 2 75MG Q12H
     Route: 048
  5. PLAVIX [Concomitant]
     Indication: CARDIAC DISORDER
     Dosage: 2 75MG Q12H
     Route: 048
  6. PLAVIX [Concomitant]
     Indication: ANTICOAGULANT THERAPY
     Dosage: 2 75MG Q12H
     Route: 048
  7. PLAVIX [Concomitant]
     Indication: STENT PLACEMENT
     Dosage: THE PATIENT WAS ON DOUBLE PLAVIX
  8. PLAVIX [Concomitant]
     Indication: CARDIAC DISORDER
     Dosage: THE PATIENT WAS ON DOUBLE PLAVIX
  9. PLAVIX [Concomitant]
     Indication: ANTICOAGULANT THERAPY
     Dosage: THE PATIENT WAS ON DOUBLE PLAVIX
  10. OXYCODONE HYDROCHLORIDE [Concomitant]
     Indication: NEUROPATHY PERIPHERAL
  11. OXYCODONE HYDROCHLORIDE [Concomitant]
     Indication: PAIN
  12. OXYCODONE HYDROCHLORIDE [Concomitant]
     Indication: NEUROPATHY PERIPHERAL
     Dosage: 5 MG  2 TABLETS QID
     Route: 048
  13. OXYCODONE HYDROCHLORIDE [Concomitant]
     Indication: PAIN
     Dosage: 5 MG  2 TABLETS QID
     Route: 048
  14. CHOLECALCIFEROL [Concomitant]
     Indication: VITAMIN SUPPLEMENTATION
  15. AMITRIPTYLINE [Concomitant]
  16. CITALOPRAM HYDROBROMIDE [Concomitant]
  17. CLONAZEPAM [Concomitant]
     Indication: AGITATION
  18. LORAZEPAM [Concomitant]
     Indication: NEUROPATHY PERIPHERAL
  19. LORAZEPAM [Concomitant]
     Indication: BACK INJURY
  20. LORAZEPAM [Concomitant]
     Indication: PARAESTHESIA
  21. POTASSIUM CL [Concomitant]
     Indication: NEPHROLITHIASIS
  22. POTASSIUM CL [Concomitant]
     Indication: BLOOD POTASSIUM DECREASED
  23. POTASSIUM CL [Concomitant]
     Indication: NEPHROLITHIASIS
  24. POTASSIUM CL [Concomitant]
     Indication: BLOOD POTASSIUM DECREASED
  25. AMLODIPINE BISULFATE [Concomitant]
     Indication: BLOOD PRESSURE ABNORMAL
  26. AMLODIPINE BISULFATE [Concomitant]
     Indication: BLOOD PRESSURE ABNORMAL
  27. NIASPAN [Concomitant]
     Indication: BLOOD CHOLESTEROL ABNORMAL
  28. NIASPAN [Concomitant]
     Indication: BLOOD CHOLESTEROL ABNORMAL
     Dosage: NIACIN 500 MG 2 DAILY
  29. ALLOPURINOL [Concomitant]
  30. IMDUR [Concomitant]
     Indication: CHEST PAIN
  31. IMDUR [Concomitant]
     Indication: CHEST PAIN
  32. PROVIGIL [Concomitant]
     Indication: LOSS OF CONSCIOUSNESS
  33. PROVIGIL [Concomitant]
     Indication: HYPERSOMNIA
  34. PROVIGIL [Concomitant]
     Indication: NARCOLEPSY
  35. PROVIGIL [Concomitant]
     Indication: LOSS OF CONSCIOUSNESS
  36. PROVIGIL [Concomitant]
     Indication: HYPERSOMNIA
  37. PROVIGIL [Concomitant]
     Indication: NARCOLEPSY
  38. PANTOPRAZOLE [Concomitant]
     Indication: GASTRIC DISORDER
  39. PANTOPRAZOLE [Concomitant]
     Indication: GASTRIC DISORDER
  40. OMEGA 3 FISH OIL [Concomitant]
     Indication: VITAMIN SUPPLEMENTATION
     Dosage: EVENING
  41. OMEGA 3 FISH OIL [Concomitant]
     Indication: VITAMIN SUPPLEMENTATION
     Dosage: TWO TIMES A DAY
  42. LOSARTAN [Concomitant]
  43. UNSPECIFED CREAM [Concomitant]
     Indication: TINEA PEDIS
  44. SAW PALMETTO [Concomitant]
  45. CYANOCOBALAMIN [Concomitant]
  46. LORATADINE [Concomitant]
     Indication: HYPERSENSITIVITY
  47. ECOTRIM [Concomitant]
     Indication: CARDIAC DISORDER
  48. PATANASE [Concomitant]
     Indication: HYPERSENSITIVITY
     Dosage: 2 SPRAYS DAILY
  49. VITAMIN D [Concomitant]
     Indication: VITAMIN D DECREASED
  50. UROCIT K [Concomitant]
  51. LIDOCOCANAINE [Concomitant]
     Indication: ANALGESIC THERAPY

REACTIONS (14)
  - Cardiac arrest [Recovered/Resolved]
  - Dyspnoea [Recovered/Resolved]
  - Thrombosis [Unknown]
  - Musculoskeletal disorder [Unknown]
  - Swollen tongue [Recovered/Resolved]
  - Weight decreased [Recovered/Resolved]
  - Weight increased [Recovered/Resolved]
  - Drug withdrawal syndrome [Not Recovered/Not Resolved]
  - Hot flush [Not Recovered/Not Resolved]
  - Thinking abnormal [Not Recovered/Not Resolved]
  - Neuropathy peripheral [Not Recovered/Not Resolved]
  - Memory impairment [Not Recovered/Not Resolved]
  - Drug hypersensitivity [Not Recovered/Not Resolved]
  - Drug dose omission [Not Recovered/Not Resolved]
